FAERS Safety Report 5789294-8 (Version None)
Quarter: 2008Q2

REPORT INFORMATION
  Report Type: 
  Country: None (occurrence: None)
  Receive Date: 20080626
  Receipt Date: 20080623
  Transmission Date: 20081010
  Serious: Yes (Death)
  Sender: FDA-Public Use
  Company Number: US-GILEAD-2008-0016356

PATIENT
  Sex: Male
  Weight: 98.064 kg

DRUGS (7)
  1. LETAIRIS [Suspect]
     Indication: PULMONARY ARTERIAL HYPERTENSION
     Route: 048
     Dates: start: 20080501, end: 20080519
  2. THIORIDAZINE HCL [Concomitant]
     Route: 048
  3. ALBUTEROL [Concomitant]
     Indication: CHRONIC OBSTRUCTIVE PULMONARY DISEASE
     Route: 055
  4. NEXIUM [Concomitant]
     Route: 048
  5. FORMOTEROL FUMARATE [Concomitant]
     Route: 055
  6. TIOTROPIUM [Concomitant]
     Route: 055
  7. TRAMADOL HCL [Concomitant]
     Route: 048
     Dates: start: 20080603

REACTIONS (2)
  - CHEST PAIN [None]
  - DYSPNOEA [None]
